FAERS Safety Report 7866601 (Version 3)
Quarter: 2017Q1

REPORT INFORMATION
  Report Type: Spontaneous
  Country: US (occurrence: US)
  Receive Date: 20110322
  Receipt Date: 20170306
  Transmission Date: 20170429
  Serious: Yes (Other)
  Sender: FDA-Public Use
  Company Number: US-AMGEN-USASP2011014631

PATIENT

DRUGS (2)
  1. ARANESP [Suspect]
     Active Substance: DARBEPOETIN ALFA
     Indication: ANAEMIA
     Dosage: 200 MCG, UNK
     Route: 065
     Dates: start: 20110316, end: 20110316
  2. PROCRIT [Suspect]
     Active Substance: ERYTHROPOIETIN
     Indication: ANAEMIA
     Dosage: 10000 IU, 3 TIMES/WK
     Route: 065

REACTIONS (1)
  - Wrong drug administered [Unknown]

NARRATIVE: CASE EVENT DATE: 20110316
